FAERS Safety Report 9435016 (Version 1)
Quarter: 2013Q3

REPORT INFORMATION
  Report Type: Spontaneous
  Country: LK (occurrence: None)
  Receive Date: 20130730
  Receipt Date: 20130730
  Transmission Date: 20140515
  Serious: Yes (Hospitalization)
  Sender: FDA-Public Use
  Company Number: 2013P1012941

PATIENT
  Age: 6 Year
  Sex: Female
  Weight: 27 kg

DRUGS (1)
  1. VALPROATE SODIUM [Suspect]
     Indication: COMPLEX PARTIAL SEIZURES

REACTIONS (12)
  - Pyrexia [None]
  - Decreased appetite [None]
  - Vomiting [None]
  - Rash erythematous [None]
  - Hepatotoxicity [None]
  - Hepatic encephalopathy [None]
  - Coma [None]
  - Blood pressure increased [None]
  - Clonic convulsion [None]
  - Acute hepatic failure [None]
  - Posterior reversible encephalopathy syndrome [None]
  - International normalised ratio increased [None]
